FAERS Safety Report 4851998-9 (Version None)
Quarter: 2005Q4

REPORT INFORMATION
  Report Type: 
  Country: None (occurrence: None)
  Receive Date: 20051213
  Receipt Date: 20050919
  Transmission Date: 20060501
  Serious: Yes (Other)
  Sender: FDA-Public Use
  Company Number: PHNR2005AU01429

PATIENT
  Age: 53 Year
  Sex: Male

DRUGS (6)
  1. ZOMETA [Suspect]
     Indication: MULTIPLE MYELOMA
     Dosage: 4 MG, QMO
     Dates: start: 20030801, end: 20050608
  2. VINCRISTINE [Concomitant]
     Indication: MULTIPLE MYELOMA
     Dates: start: 20021203
  3. DOXORUBICIN [Concomitant]
     Indication: MULTIPLE MYELOMA
     Dates: start: 20021203
  4. MELPHALAN [Concomitant]
     Indication: MULTIPLE MYELOMA
     Dates: start: 20021203
  5. BORTEZOMIB [Concomitant]
     Dates: start: 20021203
  6. PAMIDRONATE DISODIUM [Suspect]
     Dosage: 90 MG, MONTHLY
     Dates: start: 20021206, end: 20030103

REACTIONS (4)
  - BONE DISORDER [None]
  - MOUTH ULCERATION [None]
  - OSTEONECROSIS [None]
  - SOFT TISSUE INFECTION [None]
